FAERS Safety Report 22357410 (Version 1)
Quarter: 2023Q2

REPORT INFORMATION
  Report Type: Report from Study
  Country: FR (occurrence: FR)
  Receive Date: 20230524
  Receipt Date: 20230524
  Transmission Date: 20230722
  Serious: Yes (Hospitalization, Other)
  Sender: FDA-Public Use
  Company Number: FR-ABBVIE-5177726

PATIENT
  Age: 17 Year
  Sex: Male

DRUGS (2)
  1. HUMIRA [Suspect]
     Active Substance: ADALIMUMAB
     Indication: Crohn^s disease
     Route: 058
  2. HUMIRA [Suspect]
     Active Substance: ADALIMUMAB
     Route: 058
     Dates: start: 20221108

REACTIONS (6)
  - Fistula of small intestine [Recovering/Resolving]
  - Gastrointestinal inflammation [Recovering/Resolving]
  - Acne [Not Recovered/Not Resolved]
  - Renal disorder [Unknown]
  - Gastrointestinal injury [Unknown]
  - Intestinal obstruction [Unknown]
